FAERS Safety Report 11488874 (Version 2)
Quarter: 2015Q3

REPORT INFORMATION
  Report Type: Report from Study
  Country: MX (occurrence: MX)
  Receive Date: 20150909
  Receipt Date: 20150915
  Transmission Date: 20151125
  Serious: Yes (Other)
  Sender: FDA-Public Use
  Company Number: PHHY2015MX107422

PATIENT
  Sex: Female

DRUGS (2)
  1. GALVUS MET COMBIPACK [Suspect]
     Active Substance: METFORMIN HYDROCHLORIDE\VILDAGLIPTIN
     Indication: PRODUCT USED FOR UNKNOWN INDICATION
     Dosage: UNK (STRENGTH: METFORMIN 500 MG, VILDAGLIPTIN 50 MG), UNK
     Route: 065
  2. EXFORGE HCT [Suspect]
     Active Substance: AMLODIPINE BESYLATE\HYDROCHLOROTHIAZIDE\VALSARTAN
     Indication: BLOOD PRESSURE INCREASED
     Dosage: 1 DF (VALSARTAN 160 MG, AMLODIPINE 5 MG, HYDROVHLOROTHIAZIDE 12.5 MG), QD
     Route: 065

REACTIONS (2)
  - Cerebrovascular disorder [Unknown]
  - Blood pressure fluctuation [Unknown]
